FAERS Safety Report 18739351 (Version 1)
Quarter: 2021Q1

REPORT INFORMATION
  Report Type: Report from Study
  Country: US (occurrence: US)
  Receive Date: 20210114
  Receipt Date: 20210114
  Transmission Date: 20210419
  Serious: Yes (Hospitalization)
  Sender: FDA-Public Use
  Company Number: US-GILEAD-2021-0512770

PATIENT
  Sex: Male

DRUGS (11)
  1. IRON [Concomitant]
     Active Substance: IRON
  2. PREDNISONE. [Concomitant]
     Active Substance: PREDNISONE
  3. MONTELUKAST SODIUM. [Concomitant]
     Active Substance: MONTELUKAST SODIUM
  4. VITAMIN D [COLECALCIFEROL] [Concomitant]
     Active Substance: CHOLECALCIFEROL
  5. MULTIVITAMINS [VITAMINS NOS] [Concomitant]
     Active Substance: VITAMINS
  6. AZTREONAM LYSINE [Suspect]
     Active Substance: AZTREONAM LYSINE
     Indication: CYSTIC FIBROSIS
     Dosage: 75 MG, TID, ALTERNATING MONTHLY WHILE NOT ON TOBRAMYCIN
     Route: 048
  7. TUMS [Concomitant]
     Active Substance: CALCIUM CARBONATE
  8. GABAPENTIN. [Concomitant]
     Active Substance: GABAPENTIN
  9. AZITHROMYCIN ANHYDROUS. [Concomitant]
     Active Substance: AZITHROMYCIN ANHYDROUS
  10. TOBRAMYCIN. [Concomitant]
     Active Substance: TOBRAMYCIN
  11. TACROLIMUS. [Concomitant]
     Active Substance: TACROLIMUS

REACTIONS (1)
  - Localised infection [Unknown]
